FAERS Safety Report 23159841 (Version 2)
Quarter: 2023Q4

REPORT INFORMATION
  Report Type: Spontaneous
  Country: US (occurrence: US)
  Receive Date: 20231108
  Receipt Date: 20231228
  Transmission Date: 20240110
  Serious: Yes (Other)
  Sender: FDA-Public Use
  Company Number: US-PARATEK PHARMACEUTICALS, INC.-2023PTK00563

PATIENT
  Sex: Female

DRUGS (3)
  1. NUZYRA [Suspect]
     Active Substance: OMADACYCLINE
     Indication: Wound infection bacterial
     Dosage: UNK LOADING DOSE
     Route: 048
     Dates: start: 202310, end: 202310
  2. NUZYRA [Suspect]
     Active Substance: OMADACYCLINE
     Indication: Skin bacterial infection
     Dosage: UNK
     Route: 048
     Dates: start: 202310
  3. NUZYRA [Suspect]
     Active Substance: OMADACYCLINE
     Indication: Localised infection

REACTIONS (2)
  - Skin infection [Not Recovered/Not Resolved]
  - Drug ineffective [Unknown]

NARRATIVE: CASE EVENT DATE: 20231001
